FAERS Safety Report 23110455 (Version 1)
Quarter: 2023Q4

REPORT INFORMATION
  Report Type: Spontaneous
  Country: US (occurrence: None)
  Receive Date: 20231024
  Receipt Date: 20231024
  Transmission Date: 20240110
  Serious: Yes (Hospitalization)
  Sender: FDA-Public Use
  Company Number: None

PATIENT
  Age: 39 Year
  Sex: Male
  Weight: 99.7 kg

DRUGS (1)
  1. TRAZODONE HYDROCHLORIDE [Suspect]
     Active Substance: TRAZODONE HYDROCHLORIDE
     Dosage: OTHER FREQUENCY : AT BEDTIME;?
     Route: 048
     Dates: start: 20221121, end: 20230104

REACTIONS (1)
  - Priapism [None]

NARRATIVE: CASE EVENT DATE: 20221227
